FAERS Safety Report 8088683-9 (Version None)
Quarter: 2012Q1

REPORT INFORMATION
  Report Type: 
  Country: None (occurrence: None)
  Receive Date: 20120128
  Receipt Date: 20110412
  Transmission Date: 20120608
  Serious: No
  Sender: FDA-Public Use
  Company Number: US-ABBOTT-11P-163-0718477-00

PATIENT
  Age: 24 Year
  Sex: Female

DRUGS (7)
  1. FLONASE [Concomitant]
     Indication: SEASONAL ALLERGY
  2. HUMIRA [Suspect]
     Indication: CROHN'S DISEASE
     Dates: start: 20110301
  3. VITAMIN B-12 [Concomitant]
     Indication: PRODUCT USED FOR UNKNOWN INDICATION
  4. MULTI-VITAMINS [Concomitant]
     Indication: PRODUCT USED FOR UNKNOWN INDICATION
  5. ASCORBIC ACID [Concomitant]
     Indication: PRODUCT USED FOR UNKNOWN INDICATION
  6. CLARINEX [Concomitant]
     Indication: SEASONAL ALLERGY
  7. YASMIN [Concomitant]
     Indication: CONTRACEPTION

REACTIONS (2)
  - FATIGUE [None]
  - HEADACHE [None]
